FAERS Safety Report 9359609 (Version 1)
Quarter: 2013Q2

REPORT INFORMATION
  Report Type: Spontaneous
  Country: US (occurrence: US)
  Receive Date: 20130620
  Receipt Date: 20130620
  Transmission Date: 20140414
  Serious: Yes (Hospitalization, Other)
  Sender: FDA-Public Use
  Company Number: US-RB-055055-13

PATIENT
  Age: 28 Year
  Sex: Male

DRUGS (5)
  1. SUBOXONE FILM [Suspect]
     Indication: DRUG DEPENDENCE
     Dosage: SUBOXONE FILM
     Route: 060
     Dates: start: 2013, end: 2013
  2. SUBOXONE FILM [Suspect]
     Dosage: SUBOXONE FILM; VARIOUS TAPERED DOSES
     Route: 060
     Dates: start: 2013
  3. SUBOXONE TABLET [Suspect]
     Indication: DRUG DEPENDENCE
     Route: 060
     Dates: end: 2013
  4. ADDERALL [Suspect]
     Indication: DISTURBANCE IN ATTENTION
     Route: 048
     Dates: start: 201305, end: 201305
  5. ADDERALL [Suspect]
     Dosage: DOSING DETAILS UNKNOWN; TOOK ADDERALL THAT HE HAD LEFT AT HOME
     Route: 048
     Dates: start: 201305, end: 201305

REACTIONS (6)
  - Disturbance in attention [Unknown]
  - Psychotic disorder [Recovered/Resolved]
  - Underdose [Not Recovered/Not Resolved]
  - Wrong technique in drug usage process [Not Recovered/Not Resolved]
  - Drug withdrawal syndrome [Not Recovered/Not Resolved]
  - Asthenia [Not Recovered/Not Resolved]
